FAERS Safety Report 10848454 (Version 1)
Quarter: 2015Q1

REPORT INFORMATION
  Report Type: Spontaneous
  Country: ES (occurrence: ES)
  Receive Date: 20150220
  Receipt Date: 20150220
  Transmission Date: 20150721
  Serious: Yes (Hospitalization)
  Sender: FDA-Public Use
  Company Number: ES-009507513-1502ESP006789

PATIENT
  Age: 80 Year
  Sex: Male

DRUGS (1)
  1. EFFICIB [Suspect]
     Active Substance: METFORMIN HYDROCHLORIDE\SITAGLIPTIN PHOSPHATE
     Indication: TYPE 2 DIABETES MELLITUS
     Dosage: 1 DF, Q12H
     Route: 048
     Dates: start: 20141127, end: 20141223

REACTIONS (2)
  - Metabolic acidosis [Recovered/Resolved]
  - Renal failure [None]

NARRATIVE: CASE EVENT DATE: 20141218
